FAERS Safety Report 4904737-7 (Version None)
Quarter: 2006Q1

REPORT INFORMATION
  Report Type: 
  Country: None (occurrence: None)
  Receive Date: 20060208
  Receipt Date: 20050927
  Transmission Date: 20060701
  Serious: No
  Sender: FDA-Public Use
  Company Number: US-GLAXOSMITHKLINE-A0576094A

PATIENT
  Age: 38 Year
  Sex: Female

DRUGS (3)
  1. PAXIL [Suspect]
     Route: 048
  2. PAXIL [Suspect]
     Indication: PANIC DISORDER
     Route: 048
  3. XANAX [Concomitant]

REACTIONS (2)
  - ANXIETY [None]
  - THERAPEUTIC RESPONSE DELAYED [None]
